FAERS Safety Report 13884087 (Version 8)
Quarter: 2018Q1

REPORT INFORMATION
  Report Type: Spontaneous
  Country: GB (occurrence: GB)
  Receive Date: 20170821
  Receipt Date: 20180110
  Transmission Date: 20180508
  Serious: Yes (Death, Hospitalization, Other)
  Sender: FDA-Public Use
  Company Number: GB-MYLANLABS-2017M1051726

PATIENT
  Age: 54 Year
  Sex: Male

DRUGS (1)
  1. CLOZARIL [Suspect]
     Active Substance: CLOZAPINE
     Indication: SCHIZOPHRENIA
     Dosage: UNK
     Route: 048
     Dates: start: 19910531, end: 201712

REACTIONS (13)
  - White blood cell count decreased [Recovered/Resolved]
  - Drug dose omission [Unknown]
  - Lower respiratory tract infection [Recovering/Resolving]
  - Death [Fatal]
  - Gastrointestinal haemorrhage [Unknown]
  - Malaise [Unknown]
  - General physical condition abnormal [Unknown]
  - Thrombocytopenia [Not Recovered/Not Resolved]
  - Electrocardiogram QT prolonged [Unknown]
  - Treatment noncompliance [Unknown]
  - Therapy cessation [Unknown]
  - Haemoglobin decreased [Recovering/Resolving]
  - Neutrophil count decreased [Recovered/Resolved]

NARRATIVE: CASE EVENT DATE: 2017
